FAERS Safety Report 25752275 (Version 1)
Quarter: 2025Q3

REPORT INFORMATION
  Report Type: Spontaneous
  Country: US (occurrence: US)
  Receive Date: 20250902
  Receipt Date: 20250902
  Transmission Date: 20251020
  Serious: No
  Sender: INSUD PHARMA
  Company Number: US-INSUD PHARMA-2508US07018

PATIENT

DRUGS (1)
  1. ENILLORING [Suspect]
     Active Substance: ETHINYL ESTRADIOL\ETONOGESTREL
     Indication: Product used for unknown indication
     Route: 067
     Dates: start: 2024

REACTIONS (4)
  - Abdominal distension [Unknown]
  - Headache [Unknown]
  - Intermenstrual bleeding [Unknown]
  - Product substitution issue [Unknown]

NARRATIVE: CASE EVENT DATE: 20240101
